FAERS Safety Report 6942190-2 (Version None)
Quarter: 2010Q3

REPORT INFORMATION
  Report Type: 
  Country: None (occurrence: None)
  Receive Date: 20100823
  Receipt Date: 20100812
  Transmission Date: 20110219
  Serious: Yes (Hospitalization)
  Sender: FDA-Public Use
  Company Number: 2010US003264

PATIENT
  Age: 54 Year
  Sex: Male
  Weight: 113 kg

DRUGS (9)
  1. PROGRAF [Suspect]
     Indication: HEART TRANSPLANT
     Dosage: 5 MG, BID, ORAL
     Route: 048
     Dates: start: 20010129
  2. CELLCEPT [Concomitant]
  3. PROCARDIA XL [Concomitant]
  4. ENALAPRIL MALEATE [Concomitant]
  5. PROTONIX [Concomitant]
  6. LANTUS [Concomitant]
  7. HUMALOG [Concomitant]
  8. OXYCODONE [Concomitant]
  9. XANAX [Concomitant]

REACTIONS (2)
  - KNEE ARTHROPLASTY [None]
  - SURGICAL PROCEDURE REPEATED [None]
